FAERS Safety Report 10469665 (Version 1)
Quarter: 2014Q3

REPORT INFORMATION
  Report Type: Report from Study
  Country: US (occurrence: US)
  Receive Date: 20140923
  Receipt Date: 20140923
  Transmission Date: 20150326
  Serious: Yes (Hospitalization)
  Sender: FDA-Public Use
  Company Number: US-JNJFOC-20140912948

PATIENT
  Age: 63 Year
  Sex: Female
  Weight: 117.94 kg

DRUGS (2)
  1. XARELTO [Suspect]
     Active Substance: RIVAROXABAN
     Indication: PULMONARY THROMBOSIS
     Route: 048
     Dates: start: 20140812, end: 20140818
  2. XARELTO [Suspect]
     Active Substance: RIVAROXABAN
     Indication: PULMONARY THROMBOSIS
     Route: 048
     Dates: start: 201407, end: 20140811

REACTIONS (12)
  - Nausea [Unknown]
  - Diarrhoea [Unknown]
  - Gait disturbance [Unknown]
  - Ulcer haemorrhage [Recovered/Resolved]
  - Blood magnesium decreased [Unknown]
  - Hypotension [Unknown]
  - Heart rate increased [Unknown]
  - Feeling abnormal [Unknown]
  - Abnormal loss of weight [Not Recovered/Not Resolved]
  - Haemoglobin decreased [Recovered/Resolved]
  - Faeces discoloured [Unknown]
  - Blood calcium decreased [Unknown]

NARRATIVE: CASE EVENT DATE: 2014
